FAERS Safety Report 13916255 (Version 1)
Quarter: 2017Q3

REPORT INFORMATION
  Report Type: Spontaneous
  Country: PL (occurrence: PL)
  Receive Date: 20170829
  Receipt Date: 20170829
  Transmission Date: 20171127
  Serious: Yes (Hospitalization)
  Sender: FDA-Public Use
  Company Number: PL-UNITED THERAPEUTICS-UNT-2017-012462

PATIENT
  Sex: Female

DRUGS (1)
  1. REMODULIN [Suspect]
     Active Substance: TREPROSTINIL
     Indication: PULMONARY ARTERIAL HYPERTENSION
     Dosage: UNK
     Route: 041
     Dates: start: 20140305

REACTIONS (3)
  - Product use issue [Unknown]
  - Weight increased [Unknown]
  - Device dislocation [Unknown]

NARRATIVE: CASE EVENT DATE: 2017
